FAERS Safety Report 7821010-8 (Version None)
Quarter: 2011Q4

REPORT INFORMATION
  Report Type: 
  Country: None (occurrence: None)
  Receive Date: 20111018
  Receipt Date: 20111010
  Transmission Date: 20120403
  Serious: Yes (Other)
  Sender: FDA-Public Use
  Company Number: IT-TEVA-305086ISR

PATIENT
  Age: 71 Year
  Sex: Male

DRUGS (4)
  1. CYTARABINE [Suspect]
     Dates: start: 20020901
  2. IDARUBICIN HCL [Suspect]
     Dates: start: 20020901
  3. ETOPOSIDE [Suspect]
     Dates: start: 20020901
  4. MERCAPTOPURINE [Suspect]
     Dates: end: 20040901

REACTIONS (2)
  - POLYCYTHAEMIA VERA [None]
  - MYELOPROLIFERATIVE DISORDER [None]
